FAERS Safety Report 17752817 (Version 2)
Quarter: 2020Q2

REPORT INFORMATION
  Report Type: Spontaneous
  Country: US (occurrence: US)
  Receive Date: 20200506
  Receipt Date: 20200630
  Transmission Date: 20200714
  Serious: No
  Sender: FDA-Public Use
  Company Number: US-EMD SERONO-9158855

PATIENT
  Sex: Female
  Weight: 95 kg

DRUGS (1)
  1. MAVENCLAD [Suspect]
     Active Substance: CLADRIBINE
     Indication: MULTIPLE SCLEROSIS
     Dosage: MONTH ONE THERAPY: TOOK 100 MG
     Dates: start: 20200522

REACTIONS (2)
  - Off label use [Unknown]
  - Weight decreased [Unknown]
